FAERS Safety Report 16452370 (Version 2)
Quarter: 2019Q3

REPORT INFORMATION
  Report Type: Spontaneous
  Country: KR (occurrence: KR)
  Receive Date: 20190619
  Receipt Date: 20190702
  Transmission Date: 20191004
  Serious: Yes (Death, Hospitalization, Other)
  Sender: FDA-Public Use
  Company Number: KR-009507513-1903KOR001810

PATIENT
  Sex: Male

DRUGS (17)
  1. JURNISTA [Concomitant]
     Active Substance: HYDROMORPHONE HYDROCHLORIDE
     Dosage: QUANTITY 1; DAYS 14
     Route: 048
     Dates: start: 20190213, end: 20190213
  2. JURNISTA [Concomitant]
     Active Substance: HYDROMORPHONE HYDROCHLORIDE
     Dosage: QUANTITY 8; DAYS 14
     Route: 048
     Dates: start: 20190213, end: 20190213
  3. MACPERAN [Concomitant]
     Active Substance: METOCLOPRAMIDE HYDROCHLORIDE
     Dosage: QUANTITY 6; DAYS 5
     Route: 048
     Dates: start: 20190213, end: 20190213
  4. JURNISTA [Concomitant]
     Active Substance: HYDROMORPHONE HYDROCHLORIDE
     Dosage: QUANTITY 1; DAYS 14
     Dates: start: 20190213, end: 20190213
  5. TYLENOL [Concomitant]
     Active Substance: ACETAMINOPHEN
     Dosage: QUANTITY 1; DAYS 1
     Route: 048
     Dates: start: 20190213, end: 20190213
  6. SODIUM CHLORIDE. [Concomitant]
     Active Substance: SODIUM CHLORIDE
     Dosage: QUANTITY 1; DAYS 1
     Dates: start: 20190213, end: 20190213
  7. NORZYME [Concomitant]
     Dosage: QUANTITY 3; DAYS 14
     Route: 048
     Dates: start: 20190213, end: 20190213
  8. MACPERAN [Concomitant]
     Active Substance: METOCLOPRAMIDE HYDROCHLORIDE
     Dosage: QUANTITY 1; DAYS 1
     Route: 048
     Dates: start: 20190322, end: 20190322
  9. PINE [Concomitant]
     Dosage: QUANTITY 1; DAYS 1
     Dates: start: 20190213, end: 20190213
  10. SODIUM CHLORIDE. [Concomitant]
     Active Substance: SODIUM CHLORIDE
     Dosage: QUANTITY 1; DAYS 2
     Dates: start: 20190213, end: 20190213
  11. DUPHALAC [Concomitant]
     Active Substance: LACTULOSE
     Dosage: QUANTITY 1; DAYS 14
     Dates: start: 20190213, end: 20190213
  12. PENIRAMIN [Concomitant]
     Dosage: QUANTITY 1; DAYS 1
     Dates: start: 20190213, end: 20190213
  13. PENIRAMIN [Concomitant]
     Dosage: QUANTITY 2; DAYS 1
     Dates: start: 20190325, end: 20190401
  14. KEYTRUDA [Suspect]
     Active Substance: PEMBROLIZUMAB
     Dosage: QUANTITY 2; DAYS 1
     Dates: start: 20190306, end: 20190306
  15. KEYTRUDA [Suspect]
     Active Substance: PEMBROLIZUMAB
     Dosage: QUANTITY 2; DAYS 1
     Dates: start: 20190401, end: 20190401
  16. KEYTRUDA [Suspect]
     Active Substance: PEMBROLIZUMAB
     Indication: GALLBLADDER CANCER
     Dosage: QUANTITY 2; DAYS 1
     Dates: start: 20190213, end: 20190213
  17. SMOFLIPID [Concomitant]
     Active Substance: FISH OIL\MEDIUM-CHAIN TRIGLYCERIDES\OLIVE OIL\SOYBEAN OIL
     Dosage: STRENGTH: 20% 250 ML
     Dates: start: 20190213, end: 20190213

REACTIONS (3)
  - Product use in unapproved indication [Unknown]
  - Adverse event [Unknown]
  - Malignant neoplasm progression [Fatal]

NARRATIVE: CASE EVENT DATE: 2019
